FAERS Safety Report 23863257 (Version 2)
Quarter: 2024Q2

REPORT INFORMATION
  Report Type: Report from Study
  Country: US (occurrence: US)
  Receive Date: 20240516
  Receipt Date: 20240604
  Transmission Date: 20240716
  Serious: Yes (Hospitalization)
  Sender: FDA-Public Use
  Company Number: US-JNJFOC-20240503320

PATIENT
  Age: 60 Year
  Sex: Female

DRUGS (5)
  1. SELEXIPAG [Suspect]
     Active Substance: SELEXIPAG
     Indication: Pulmonary arterial hypertension
     Route: 048
     Dates: start: 202401
  2. SELEXIPAG [Suspect]
     Active Substance: SELEXIPAG
     Route: 048
     Dates: start: 20240105, end: 20240506
  3. AMBRISENTAN [Concomitant]
     Active Substance: AMBRISENTAN
  4. LETAIRIS [Concomitant]
     Active Substance: AMBRISENTAN
  5. UPTRAVI [Concomitant]
     Active Substance: SELEXIPAG

REACTIONS (5)
  - Pain [Unknown]
  - Incorrect dose administered [Unknown]
  - Gastroenteritis [Recovering/Resolving]
  - Headache [Unknown]
  - Pain in jaw [Unknown]

NARRATIVE: CASE EVENT DATE: 20240501
